FAERS Safety Report 14014082 (Version 5)
Quarter: 2018Q2

REPORT INFORMATION
  Report Type: Spontaneous
  Country: US (occurrence: US)
  Receive Date: 20170927
  Receipt Date: 20180622
  Transmission Date: 20180711
  Serious: Yes (Hospitalization)
  Sender: FDA-Public Use
  Company Number: US-BIOGEN-2017BI00462667

PATIENT
  Age: 15 Year
  Sex: Female

DRUGS (2)
  1. SPINRAZA [Suspect]
     Active Substance: NUSINERSEN
     Indication: SPINAL MUSCULAR ATROPHY
     Route: 037
     Dates: start: 20170912
  2. SPINRAZA [Suspect]
     Active Substance: NUSINERSEN
     Route: 037
     Dates: start: 20180615

REACTIONS (3)
  - Dural tear [Recovered/Resolved]
  - Post lumbar puncture syndrome [Recovered/Resolved]
  - Post laminectomy syndrome [Not Recovered/Not Resolved]

NARRATIVE: CASE EVENT DATE: 20170912
